FAERS Safety Report 18831770 (Version 1)
Quarter: 2021Q1

REPORT INFORMATION
  Report Type: Spontaneous
  Country: US (occurrence: US)
  Receive Date: 20210203
  Receipt Date: 20210203
  Transmission Date: 20210419
  Serious: Yes (Disabling, Other)
  Sender: FDA-Public Use
  Company Number: US-SPECGX-T202100157

PATIENT
  Age: 54 Year
  Sex: Male
  Weight: 91 kg

DRUGS (1)
  1. FENTANYL TRANSDERMAL SYSTEM [Suspect]
     Active Substance: FENTANYL
     Indication: PAIN
     Dosage: UNK, AT EVERY 72 HOURS
     Route: 062

REACTIONS (5)
  - Gait disturbance [Unknown]
  - Overdose [Unknown]
  - Disability [Unknown]
  - Product quality issue [Unknown]
  - Miosis [Unknown]

NARRATIVE: CASE EVENT DATE: 20210124
